FAERS Safety Report 6697056-2 (Version None)
Quarter: 2010Q2

REPORT INFORMATION
  Report Type: 
  Country: None (occurrence: None)
  Receive Date: 20100426
  Receipt Date: 20100414
  Transmission Date: 20101027
  Serious: Yes (Other)
  Sender: FDA-Public Use
  Company Number: ZA-JNJFOC-20100403575

PATIENT
  Sex: Male

DRUGS (3)
  1. DAKATRIN [Suspect]
     Route: 048
  2. DAKATRIN [Suspect]
     Indication: ORAL CANDIDIASIS
     Dosage: USED FOR 2 WEEKS OR MORE
     Route: 048
  3. WARFARIN SODIUM [Interacting]
     Indication: DRUG USE FOR UNKNOWN INDICATION
     Route: 065

REACTIONS (3)
  - DRUG INTERACTION [None]
  - FULL BLOOD COUNT INCREASED [None]
  - INTERNATIONAL NORMALISED RATIO INCREASED [None]
